FAERS Safety Report 8210987 (Version 2)
Quarter: 2012Q4

REPORT INFORMATION
  Report Type: 
  Country: US (occurrence: US)
  Receive Date: 20111029
  Receipt Date: 20120904
  Transmission Date: 20130627
  Serious: No
  Sender: FDA-Public Use
  Company Number: US-AMGEN-USASP2011013023

PATIENT
  Age: 61 Year
  Sex: Female
  Weight: 95.24 kg

DRUGS (5)
  1. ENBREL [Suspect]
     Indication: RHEUMATOID ARTHRITIS
     Dosage: 50 mg, qwk
     Route: 058
     Dates: start: 20101101, end: 20110301
  2. BONIVA [Concomitant]
     Indication: OSTEOPOROSIS
     Dosage: 150 mg, UNK
     Route: 048
     Dates: start: 200712
  3. TOPROL [Concomitant]
     Indication: HYPERTENSION
     Dosage: UNK
     Route: 048
     Dates: start: 201008
  4. RYTHMOL                            /00546301/ [Concomitant]
     Indication: ARRHYTHMIA
     Dosage: 225 mg, bid
     Route: 048
     Dates: start: 201008
  5. COUMADIN /00014802/ [Concomitant]
     Indication: ATRIAL FIBRILLATION
     Dosage: 5 mg, UNK
     Route: 048
     Dates: start: 200211

REACTIONS (5)
  - Tongue ulceration [Unknown]
  - Swollen tongue [Recovered/Resolved]
  - Oropharyngeal pain [Not Recovered/Not Resolved]
  - Plicated tongue [Not Recovered/Not Resolved]
  - Tinea infection [Unknown]
